FAERS Safety Report 24302549 (Version 1)
Quarter: 2024Q3

REPORT INFORMATION
  Report Type: Spontaneous
  Country: US (occurrence: US)
  Receive Date: 20240910
  Receipt Date: 20240910
  Transmission Date: 20241016
  Serious: No
  Sender: SANDOZ
  Company Number: US-ALCON LABORATORIES-ALC2022US005399

PATIENT
  Sex: Male

DRUGS (5)
  1. ALPHAGAN P [Suspect]
     Active Substance: BRIMONIDINE TARTRATE
     Indication: Glaucoma
     Dosage: UNK
     Route: 065
  2. GENTEAL MILD [Suspect]
     Active Substance: HYPROMELLOSE 2910 (4000 MPA.S)
     Indication: Product used for unknown indication
     Dosage: UNK (DEXTRAN 70 HPMC 0.1% 0.3)
     Route: 047
  3. GENTEAL MILD [Suspect]
     Active Substance: HYPROMELLOSE 2910 (4000 MPA.S)
     Dosage: UNK (DEXTRAN 70 HPMC 0.1% 0.3)
     Route: 047
  4. TIMOLOL MALEATE [Suspect]
     Active Substance: TIMOLOL MALEATE
     Indication: Glaucoma
     Dosage: UNK
     Route: 065
  5. TRAVATAN Z [Suspect]
     Active Substance: TRAVOPROST
     Indication: Glaucoma
     Dosage: UNK
     Route: 065

REACTIONS (3)
  - Milia [Unknown]
  - Eye discharge [Recovering/Resolving]
  - Product deposit [Unknown]
